FAERS Safety Report 23749488 (Version 2)
Quarter: 2024Q2

REPORT INFORMATION
  Report Type: Report from Study
  Country: US (occurrence: US)
  Receive Date: 20240416
  Receipt Date: 20240419
  Transmission Date: 20240715
  Serious: No
  Sender: FDA-Public Use
  Company Number: US-JAZZ PHARMACEUTICALS-2024-US-006043

PATIENT
  Age: 37 Year
  Sex: Female

DRUGS (8)
  1. EPIDIOLEX [Suspect]
     Active Substance: CANNABIDIOL
     Indication: Seizure
     Dosage: 4.5 MILLILITER, BID
     Route: 048
     Dates: start: 20240118
  2. CALCIUM + MAGNESIUM + ZINK [Concomitant]
     Indication: Product used for unknown indication
  3. CLONAZEPAM [Concomitant]
     Active Substance: CLONAZEPAM
     Indication: Product used for unknown indication
  4. LAMICTAL [Concomitant]
     Active Substance: LAMOTRIGINE
  5. MYSOLINE [Concomitant]
     Active Substance: PRIMIDONE
     Indication: Product used for unknown indication
  6. MYSOLINE [Concomitant]
     Active Substance: PRIMIDONE
     Dosage: 50 MILLIGRAM
  7. RISPERDAL [Concomitant]
     Active Substance: RISPERIDONE
     Indication: Product used for unknown indication
  8. CHOLECALCIFEROL [Concomitant]
     Active Substance: CHOLECALCIFEROL
     Indication: Product used for unknown indication

REACTIONS (3)
  - Fall [Recovered/Resolved]
  - Head injury [Recovered/Resolved]
  - Gait disturbance [Recovered/Resolved]

NARRATIVE: CASE EVENT DATE: 20240407
